FAERS Safety Report 25909326 (Version 3)
Quarter: 2025Q4

REPORT INFORMATION
  Report Type: Report from Study
  Country: US (occurrence: US)
  Receive Date: 20251011
  Receipt Date: 20251110
  Transmission Date: 20260117
  Serious: Yes (Other)
  Sender: ABBVIE
  Company Number: US-ABBVIE-6492367

PATIENT
  Age: 70 Year
  Sex: Female

DRUGS (1)
  1. CREON [Suspect]
     Active Substance: PANCRELIPASE AMYLASE\PANCRELIPASE LIPASE\PANCRELIPASE PROTEASE
     Indication: Neoplasm malignant
     Route: 048
     Dates: start: 20250604

REACTIONS (4)
  - Stent placement [Unknown]
  - Weight increased [Recovering/Resolving]
  - Liver disorder [Unknown]
  - Medical device discomfort [Unknown]

NARRATIVE: CASE EVENT DATE: 20251001
